FAERS Safety Report 5023613-5 (Version None)
Quarter: 2006Q2

REPORT INFORMATION
  Report Type: 
  Country: None (occurrence: None)
  Receive Date: 20060428
  Receipt Date: 20060301
  Transmission Date: 20061013
  Serious: No
  Sender: FDA-Public Use
  Company Number: WAES 0603USA00318

PATIENT
  Age: 27 Year
  Sex: Male

DRUGS (9)
  1. EMEND [Suspect]
     Indication: CHEMOTHERAPY
     Dosage: 125 MG/1X/PO
     Route: 048
  2. EMEND [Suspect]
     Indication: PROPHYLAXIS
     Dosage: 125 MG/1X/PO
     Route: 048
  3. ATIVAN [Concomitant]
  4. DECADRON [Concomitant]
  5. KYTRIL [Concomitant]
  6. MARINOL [Concomitant]
  7. CISPLATIN [Concomitant]
  8. IFOSFAMIDE [Concomitant]
  9. VINBLASTINE SULFATE [Concomitant]

REACTIONS (1)
  - HEADACHE [None]
